FAERS Safety Report 9748283 (Version 1)
Quarter: 2013Q4

REPORT INFORMATION
  Report Type: Spontaneous
  Country: GB (occurrence: None)
  Receive Date: 20131206
  Receipt Date: 20131206
  Transmission Date: 20140711
  Serious: Yes (Other)
  Sender: FDA-Public Use
  Company Number: AUR-APL-2013-09993

PATIENT
  Sex: Female

DRUGS (1)
  1. FLUCONAZOLE [Suspect]
     Indication: CANDIDA INFECTION
     Dosage: 42.8571 MG (1150 M, 2 IN 1 WK) UNKNOWN
     Dates: start: 2010

REACTIONS (2)
  - Drug effect incomplete [None]
  - Pathogen resistance [None]
